FAERS Safety Report 25088823 (Version 1)
Quarter: 2025Q1

REPORT INFORMATION
  Report Type: Spontaneous
  Country: GB (occurrence: GB)
  Receive Date: 20250318
  Receipt Date: 20250318
  Transmission Date: 20250409
  Serious: Yes (Disabling, Other)
  Sender: TORRENT PHARMA INC.
  Company Number: None

PATIENT
  Age: 16 Year
  Sex: Male

DRUGS (2)
  1. CETIRIZINE [Suspect]
     Active Substance: CETIRIZINE HYDROCHLORIDE
     Indication: Skin irritation
     Route: 065
     Dates: start: 20250116, end: 20250130
  2. FEXOFENADINE [Concomitant]
     Active Substance: FEXOFENADINE HYDROCHLORIDE
     Indication: Skin irritation
     Dosage: 180 MG 1 A DAY AND INCREASE TO 4 A DAY
     Route: 065
     Dates: start: 202409, end: 20250130

REACTIONS (6)
  - Medication error [Unknown]
  - Psychotic disorder [Not Recovered/Not Resolved]
  - Therapy cessation [Unknown]
  - Suicidal ideation [Unknown]
  - Skin irritation [Unknown]
  - Temperature intolerance [Unknown]

NARRATIVE: CASE EVENT DATE: 20240130
